FAERS Safety Report 25300915 (Version 2)
Quarter: 2025Q3

REPORT INFORMATION
  Report Type: Spontaneous
  Country: EU (occurrence: EU)
  Receive Date: 20250512
  Receipt Date: 20250808
  Transmission Date: 20251020
  Serious: Yes (Death, Life-Threatening, Hospitalization, Other)
  Sender: MYLAN
  Company Number: EU-SANDOZ-SDZ2025IT027199

PATIENT
  Age: 5 Year
  Sex: Male

DRUGS (92)
  1. PREDNISONE [Suspect]
     Active Substance: PREDNISONE
     Indication: Prophylaxis against graft versus host disease
  2. PREDNISONE [Suspect]
     Active Substance: PREDNISONE
     Route: 065
  3. PREDNISONE [Suspect]
     Active Substance: PREDNISONE
     Route: 065
  4. PREDNISONE [Suspect]
     Active Substance: PREDNISONE
  5. VORICONAZOLE [Suspect]
     Active Substance: VORICONAZOLE
     Indication: Scedosporium infection
     Dosage: 9 MILLIGRAM/KILOGRAM, BID
  6. VORICONAZOLE [Suspect]
     Active Substance: VORICONAZOLE
     Dosage: 9 MILLIGRAM/KILOGRAM, BID
  7. VORICONAZOLE [Suspect]
     Active Substance: VORICONAZOLE
     Dosage: 9 MILLIGRAM/KILOGRAM, BID
     Route: 065
  8. VORICONAZOLE [Suspect]
     Active Substance: VORICONAZOLE
     Dosage: 9 MILLIGRAM/KILOGRAM, BID
     Route: 065
  9. VORICONAZOLE [Suspect]
     Active Substance: VORICONAZOLE
     Dosage: 8 MILLIGRAM/KILOGRAM, BID
  10. VORICONAZOLE [Suspect]
     Active Substance: VORICONAZOLE
     Dosage: 8 MILLIGRAM/KILOGRAM, BID
  11. VORICONAZOLE [Suspect]
     Active Substance: VORICONAZOLE
     Dosage: 8 MILLIGRAM/KILOGRAM, BID
     Route: 065
  12. VORICONAZOLE [Suspect]
     Active Substance: VORICONAZOLE
     Dosage: 8 MILLIGRAM/KILOGRAM, BID
     Route: 065
  13. TACROLIMUS [Suspect]
     Active Substance: TACROLIMUS
     Indication: Prophylaxis against graft versus host disease
     Dosage: 0.1 MG/KG, QD INTRAVENOUSLY, MODULATED ACCORDING TO BLOOD LEVELS
  14. TACROLIMUS [Suspect]
     Active Substance: TACROLIMUS
     Dosage: 0.1 MG/KG, QD INTRAVENOUSLY, MODULATED ACCORDING TO BLOOD LEVELS
     Route: 042
  15. TACROLIMUS [Suspect]
     Active Substance: TACROLIMUS
     Dosage: 0.1 MG/KG, QD INTRAVENOUSLY, MODULATED ACCORDING TO BLOOD LEVELS
     Route: 042
  16. TACROLIMUS [Suspect]
     Active Substance: TACROLIMUS
     Dosage: 0.1 MG/KG, QD INTRAVENOUSLY, MODULATED ACCORDING TO BLOOD LEVELS
  17. MYCOPHENOLATE MOFETIL [Suspect]
     Active Substance: MYCOPHENOLATE MOFETIL
     Indication: Graft versus host disease
     Dosage: 60 MILLIGRAM/KILOGRAM, QD (60 MG/KG/DAY IN 3 DOSES)
  18. MYCOPHENOLATE MOFETIL [Suspect]
     Active Substance: MYCOPHENOLATE MOFETIL
     Dosage: 60 MILLIGRAM/KILOGRAM, QD (60 MG/KG/DAY IN 3 DOSES)
     Route: 065
  19. MYCOPHENOLATE MOFETIL [Suspect]
     Active Substance: MYCOPHENOLATE MOFETIL
     Dosage: 60 MILLIGRAM/KILOGRAM, QD (60 MG/KG/DAY IN 3 DOSES)
     Route: 065
  20. MYCOPHENOLATE MOFETIL [Suspect]
     Active Substance: MYCOPHENOLATE MOFETIL
     Dosage: 60 MILLIGRAM/KILOGRAM, QD (60 MG/KG/DAY IN 3 DOSES)
  21. CYCLOPHOSPHAMIDE [Suspect]
     Active Substance: CYCLOPHOSPHAMIDE
     Indication: Prophylaxis against graft versus host disease
  22. CYCLOPHOSPHAMIDE [Suspect]
     Active Substance: CYCLOPHOSPHAMIDE
     Route: 065
  23. CYCLOPHOSPHAMIDE [Suspect]
     Active Substance: CYCLOPHOSPHAMIDE
     Route: 065
  24. CYCLOPHOSPHAMIDE [Suspect]
     Active Substance: CYCLOPHOSPHAMIDE
  25. CYCLOSPORINE [Suspect]
     Active Substance: CYCLOSPORINE
     Indication: Prophylaxis against graft versus host disease
     Dosage: 3 MILLIGRAM/KILOGRAM, QD
  26. CYCLOSPORINE [Suspect]
     Active Substance: CYCLOSPORINE
     Dosage: 3 MILLIGRAM/KILOGRAM, QD
     Route: 065
  27. CYCLOSPORINE [Suspect]
     Active Substance: CYCLOSPORINE
     Dosage: 3 MILLIGRAM/KILOGRAM, QD
     Route: 065
  28. CYCLOSPORINE [Suspect]
     Active Substance: CYCLOSPORINE
     Dosage: 3 MILLIGRAM/KILOGRAM, QD
  29. MICAFUNGIN [Concomitant]
     Active Substance: MICAFUNGIN SODIUM
     Indication: Scedosporium infection
     Dosage: 2 MG/KG/DOSE EVERY 24 H
  30. MICAFUNGIN [Concomitant]
     Active Substance: MICAFUNGIN SODIUM
     Dosage: 2 MG/KG/DOSE EVERY 24 H
     Route: 065
  31. MICAFUNGIN [Concomitant]
     Active Substance: MICAFUNGIN SODIUM
     Dosage: 2 MG/KG/DOSE EVERY 24 H
     Route: 065
  32. MICAFUNGIN [Concomitant]
     Active Substance: MICAFUNGIN SODIUM
     Dosage: 2 MG/KG/DOSE EVERY 24 H
  33. AMPHOTERICIN B [Concomitant]
     Active Substance: AMPHOTERICIN B
     Indication: Product used for unknown indication
     Dosage: 3 MG/KG/DOSE, TWICE A WEEK
  34. AMPHOTERICIN B [Concomitant]
     Active Substance: AMPHOTERICIN B
     Dosage: 3 MG/KG/DOSE, TWICE A WEEK
     Route: 065
  35. AMPHOTERICIN B [Concomitant]
     Active Substance: AMPHOTERICIN B
     Dosage: 3 MG/KG/DOSE, TWICE A WEEK
     Route: 065
  36. AMPHOTERICIN B [Concomitant]
     Active Substance: AMPHOTERICIN B
     Dosage: 3 MG/KG/DOSE, TWICE A WEEK
  37. POSACONAZOLE [Concomitant]
     Active Substance: POSACONAZOLE
     Indication: Product used for unknown indication
     Dosage: 6.5 MG/KG/DAY
  38. POSACONAZOLE [Concomitant]
     Active Substance: POSACONAZOLE
     Dosage: 6.5 MG/KG/DAY
     Route: 065
  39. POSACONAZOLE [Concomitant]
     Active Substance: POSACONAZOLE
     Dosage: 6.5 MG/KG/DAY
     Route: 065
  40. POSACONAZOLE [Concomitant]
     Active Substance: POSACONAZOLE
     Dosage: 6.5 MG/KG/DAY
  41. BUSULFAN [Concomitant]
     Active Substance: BUSULFAN
     Indication: Product used for unknown indication
     Dosage: 1 MG/KG/DOSE FOR 16 DOSES OVER 5 DAYS
  42. BUSULFAN [Concomitant]
     Active Substance: BUSULFAN
     Dosage: 1 MG/KG/DOSE FOR 16 DOSES OVER 5 DAYS
     Route: 065
  43. BUSULFAN [Concomitant]
     Active Substance: BUSULFAN
     Dosage: 1 MG/KG/DOSE FOR 16 DOSES OVER 5 DAYS
     Route: 065
  44. BUSULFAN [Concomitant]
     Active Substance: BUSULFAN
     Dosage: 1 MG/KG/DOSE FOR 16 DOSES OVER 5 DAYS
  45. FLUDARABINE [Concomitant]
     Active Substance: FLUDARABINE PHOSPHATE
     Indication: Product used for unknown indication
     Dosage: 40 MG/M2/DAY FOR 4 DAYS
  46. FLUDARABINE [Concomitant]
     Active Substance: FLUDARABINE PHOSPHATE
     Dosage: 40 MG/M2/DAY FOR 4 DAYS
  47. FLUDARABINE [Concomitant]
     Active Substance: FLUDARABINE PHOSPHATE
     Dosage: 40 MG/M2/DAY FOR 4 DAYS
     Route: 065
  48. FLUDARABINE [Concomitant]
     Active Substance: FLUDARABINE PHOSPHATE
     Dosage: 40 MG/M2/DAY FOR 4 DAYS
     Route: 065
  49. FLUDARABINE [Concomitant]
     Active Substance: FLUDARABINE PHOSPHATE
     Dosage: 35 MG/M2/DAY
  50. FLUDARABINE [Concomitant]
     Active Substance: FLUDARABINE PHOSPHATE
     Dosage: 35 MG/M2/DAY
  51. FLUDARABINE [Concomitant]
     Active Substance: FLUDARABINE PHOSPHATE
     Dosage: 35 MG/M2/DAY
     Route: 065
  52. FLUDARABINE [Concomitant]
     Active Substance: FLUDARABINE PHOSPHATE
     Dosage: 35 MG/M2/DAY
     Route: 065
  53. LAPINE T-LYMPHOCYTE IMMUNE GLOBULIN [Concomitant]
     Active Substance: LAPINE T-LYMPHOCYTE IMMUNE GLOBULIN
     Indication: Product used for unknown indication
  54. LAPINE T-LYMPHOCYTE IMMUNE GLOBULIN [Concomitant]
     Active Substance: LAPINE T-LYMPHOCYTE IMMUNE GLOBULIN
  55. LAPINE T-LYMPHOCYTE IMMUNE GLOBULIN [Concomitant]
     Active Substance: LAPINE T-LYMPHOCYTE IMMUNE GLOBULIN
     Route: 065
  56. LAPINE T-LYMPHOCYTE IMMUNE GLOBULIN [Concomitant]
     Active Substance: LAPINE T-LYMPHOCYTE IMMUNE GLOBULIN
     Route: 065
  57. LAPINE T-LYMPHOCYTE IMMUNE GLOBULIN [Concomitant]
     Active Substance: LAPINE T-LYMPHOCYTE IMMUNE GLOBULIN
     Dosage: 12.5 MILLIGRAM/KILOGRAM, QD (12.5 MG/KG/DAY; NEOVII)
  58. LAPINE T-LYMPHOCYTE IMMUNE GLOBULIN [Concomitant]
     Active Substance: LAPINE T-LYMPHOCYTE IMMUNE GLOBULIN
     Dosage: 12.5 MILLIGRAM/KILOGRAM, QD (12.5 MG/KG/DAY; NEOVII)
  59. LAPINE T-LYMPHOCYTE IMMUNE GLOBULIN [Concomitant]
     Active Substance: LAPINE T-LYMPHOCYTE IMMUNE GLOBULIN
     Dosage: 12.5 MILLIGRAM/KILOGRAM, QD (12.5 MG/KG/DAY; NEOVII)
     Route: 065
  60. LAPINE T-LYMPHOCYTE IMMUNE GLOBULIN [Concomitant]
     Active Substance: LAPINE T-LYMPHOCYTE IMMUNE GLOBULIN
     Dosage: 12.5 MILLIGRAM/KILOGRAM, QD (12.5 MG/KG/DAY; NEOVII)
     Route: 065
  61. MEROPENEM [Concomitant]
     Active Substance: MEROPENEM
     Indication: Product used for unknown indication
  62. MEROPENEM [Concomitant]
     Active Substance: MEROPENEM
     Route: 065
  63. MEROPENEM [Concomitant]
     Active Substance: MEROPENEM
     Route: 065
  64. MEROPENEM [Concomitant]
     Active Substance: MEROPENEM
  65. AMIKACIN [Concomitant]
     Active Substance: AMIKACIN
     Indication: Product used for unknown indication
  66. AMIKACIN [Concomitant]
     Active Substance: AMIKACIN
     Route: 065
  67. AMIKACIN [Concomitant]
     Active Substance: AMIKACIN
     Route: 065
  68. AMIKACIN [Concomitant]
     Active Substance: AMIKACIN
  69. TEICOPLANIN [Concomitant]
     Active Substance: TEICOPLANIN
     Indication: Product used for unknown indication
  70. TEICOPLANIN [Concomitant]
     Active Substance: TEICOPLANIN
     Route: 065
  71. TEICOPLANIN [Concomitant]
     Active Substance: TEICOPLANIN
     Route: 065
  72. TEICOPLANIN [Concomitant]
     Active Substance: TEICOPLANIN
  73. AVIBACTAM SODIUM\CEFTAZIDIME [Concomitant]
     Active Substance: AVIBACTAM SODIUM\CEFTAZIDIME
     Indication: Product used for unknown indication
  74. AVIBACTAM SODIUM\CEFTAZIDIME [Concomitant]
     Active Substance: AVIBACTAM SODIUM\CEFTAZIDIME
     Route: 065
  75. AVIBACTAM SODIUM\CEFTAZIDIME [Concomitant]
     Active Substance: AVIBACTAM SODIUM\CEFTAZIDIME
     Route: 065
  76. AVIBACTAM SODIUM\CEFTAZIDIME [Concomitant]
     Active Substance: AVIBACTAM SODIUM\CEFTAZIDIME
  77. FOSFOMYCIN [Concomitant]
     Active Substance: FOSFOMYCIN
     Indication: Product used for unknown indication
  78. FOSFOMYCIN [Concomitant]
     Active Substance: FOSFOMYCIN
     Route: 065
  79. FOSFOMYCIN [Concomitant]
     Active Substance: FOSFOMYCIN
     Route: 065
  80. FOSFOMYCIN [Concomitant]
     Active Substance: FOSFOMYCIN
  81. CLINDAMYCIN [Concomitant]
     Active Substance: CLINDAMYCIN
     Indication: Product used for unknown indication
  82. CLINDAMYCIN [Concomitant]
     Active Substance: CLINDAMYCIN
     Route: 065
  83. CLINDAMYCIN [Concomitant]
     Active Substance: CLINDAMYCIN
     Route: 065
  84. CLINDAMYCIN [Concomitant]
     Active Substance: CLINDAMYCIN
  85. PIPERACILLIN SODIUM\TAZOBACTAM SODIUM [Concomitant]
     Active Substance: PIPERACILLIN SODIUM\TAZOBACTAM SODIUM
     Indication: Product used for unknown indication
  86. PIPERACILLIN SODIUM\TAZOBACTAM SODIUM [Concomitant]
     Active Substance: PIPERACILLIN SODIUM\TAZOBACTAM SODIUM
     Route: 065
  87. PIPERACILLIN SODIUM\TAZOBACTAM SODIUM [Concomitant]
     Active Substance: PIPERACILLIN SODIUM\TAZOBACTAM SODIUM
     Route: 065
  88. PIPERACILLIN SODIUM\TAZOBACTAM SODIUM [Concomitant]
     Active Substance: PIPERACILLIN SODIUM\TAZOBACTAM SODIUM
  89. RUXOLITINIB [Concomitant]
     Active Substance: RUXOLITINIB
     Indication: Graft versus host disease
     Dosage: UNK, BIW
  90. RUXOLITINIB [Concomitant]
     Active Substance: RUXOLITINIB
     Dosage: UNK, BIW
     Route: 065
  91. RUXOLITINIB [Concomitant]
     Active Substance: RUXOLITINIB
     Dosage: UNK, BIW
     Route: 065
  92. RUXOLITINIB [Concomitant]
     Active Substance: RUXOLITINIB
     Dosage: UNK, BIW

REACTIONS (16)
  - Gastrointestinal toxicity [Fatal]
  - Coma [Fatal]
  - Brain oedema [Fatal]
  - Brain herniation [Fatal]
  - Brain abscess [Fatal]
  - Scedosporium infection [Fatal]
  - Condition aggravated [Fatal]
  - Hepatotoxicity [Fatal]
  - Hepatic vein occlusion [Unknown]
  - Pericardial effusion [Unknown]
  - Graft versus host disease in skin [Unknown]
  - Hydrocephalus [Unknown]
  - Cytomegalovirus infection [Unknown]
  - Respiratory syncytial virus infection [Unknown]
  - Influenza [Unknown]
  - Joint abscess [Unknown]
